FAERS Safety Report 16536294 (Version 4)
Quarter: 2024Q3

REPORT INFORMATION
  Report Type: Report from Study
  Country: US (occurrence: US)
  Receive Date: 20190705
  Receipt Date: 20240830
  Transmission Date: 20241016
  Serious: No
  Sender: MYLAN
  Company Number: US-PFIZER INC-2019287709

PATIENT
  Sex: Male

DRUGS (1)
  1. LYRICA [Suspect]
     Active Substance: PREGABALIN
     Indication: Product used for unknown indication
     Dosage: 75 MG
     Route: 065

REACTIONS (1)
  - Hypoacusis [Unknown]
